FAERS Safety Report 9433498 (Version 5)
Quarter: 2022Q1

REPORT INFORMATION
  Report Type: Spontaneous
  Country: US (occurrence: US)
  Receive Date: 20130731
  Receipt Date: 20220216
  Transmission Date: 20220423
  Serious: Yes (Other)
  Sender: FDA-Public Use
  Company Number: US-PFIZER INC-2013221707

PATIENT
  Age: 66 Year
  Sex: Female
  Weight: 68 kg

DRUGS (5)
  1. EFFEXOR XR [Suspect]
     Active Substance: VENLAFAXINE HYDROCHLORIDE
     Indication: Depression
     Dosage: 75 MG, 2X/DAY
     Route: 048
  2. EFFEXOR XR [Suspect]
     Active Substance: VENLAFAXINE HYDROCHLORIDE
     Indication: Anxiety
     Dosage: 150 MG, 2X/DAY
     Route: 048
  3. EFFEXOR XR [Suspect]
     Active Substance: VENLAFAXINE HYDROCHLORIDE
     Indication: Chronic obstructive pulmonary disease
     Dosage: 300 MG, DAILY(2-150MG CAPSULES TAKEN)
     Route: 048
  4. EFFEXOR XR [Suspect]
     Active Substance: VENLAFAXINE HYDROCHLORIDE
     Dosage: 150 MG, ALTERNATE DAY
     Route: 048
  5. EFFEXOR XR [Suspect]
     Active Substance: VENLAFAXINE HYDROCHLORIDE
     Dosage: 300 MG, DAILY (STRENGTH: 150 MG (2 PILLS A DAY)

REACTIONS (3)
  - Drug dependence [Recovered/Resolved]
  - Expired product administered [Unknown]
  - Intentional product use issue [Unknown]

NARRATIVE: CASE EVENT DATE: 20190101
